FAERS Safety Report 5968717-5 (Version None)
Quarter: 2008Q4

REPORT INFORMATION
  Report Type: 
  Country: None (occurrence: None)
  Receive Date: 20081126
  Receipt Date: 20081124
  Transmission Date: 20090506
  Serious: Yes (Disabling)
  Sender: FDA-Public Use
  Company Number: A0758238A

PATIENT
  Age: 62 Year
  Sex: Female
  Weight: 83 kg

DRUGS (1)
  1. FLOVENT [Suspect]
     Indication: DRUG USE FOR UNKNOWN INDICATION
     Dosage: 2PUFF PER DAY
     Route: 055

REACTIONS (8)
  - ABDOMINAL DISTENSION [None]
  - ABDOMINAL PAIN [None]
  - ANGINA PECTORIS [None]
  - DYSPNOEA [None]
  - FLUSHING [None]
  - HYPOAESTHESIA [None]
  - PAIN IN EXTREMITY [None]
  - VISION BLURRED [None]
